FAERS Safety Report 7068242-7 (Version None)
Quarter: 2010Q4

REPORT INFORMATION
  Report Type: 
  Country: None (occurrence: None)
  Receive Date: 20101027
  Receipt Date: 20101027
  Transmission Date: 20110411
  Serious: Yes (Hospitalization)
  Sender: FDA-Public Use
  Company Number: None

PATIENT
  Age: 72 Year
  Sex: Male

DRUGS (1)
  1. WARFARIN SODIUM [Suspect]
     Indication: DEEP VEIN THROMBOSIS
     Dosage: 10 MG QDAY PO
     Route: 048
     Dates: start: 20100827, end: 20100902

REACTIONS (2)
  - HAEMATOMA [None]
  - POST PROCEDURAL HAEMORRHAGE [None]
